FAERS Safety Report 5030153-6 (Version None)
Quarter: 2006Q2

REPORT INFORMATION
  Report Type: 
  Country: None (occurrence: None)
  Receive Date: 20060614
  Receipt Date: 20060531
  Transmission Date: 20061013
  Serious: Yes (Hospitalization)
  Sender: FDA-Public Use
  Company Number: 2006-BP-06089RO

PATIENT
  Age: 85 Year
  Sex: Male

DRUGS (13)
  1. DIGOXIN [Suspect]
     Dosage: 187.5 MCG/DAY
  2. COVERSYL (PERINDOPRIL) [Suspect]
     Dosage: 8 MG/DAY
  3. ATACAND [Suspect]
     Dosage: 16 MG/DAY
  4. ALDACTONE [Suspect]
     Dosage: 0.5 MG/DAY
  5. FUROSEMIDE [Concomitant]
  6. SERETIDE (SERETIDE) [Concomitant]
  7. VENTOLIN [Concomitant]
  8. SPIRIVA [Concomitant]
  9. DIAZEPAM [Concomitant]
  10. PANADEINE (PANADEINE CO) [Concomitant]
  11. SALBUTAMOL (SALBUTAMOL) [Concomitant]
  12. ATROVENT [Concomitant]
  13. ALPHA KERI BATH OIL (OILATUM EMOLLIENT) [Concomitant]

REACTIONS (4)
  - BLOOD CREATININE INCREASED [None]
  - HYPERKALAEMIA [None]
  - RENAL IMPAIRMENT [None]
  - THERAPEUTIC AGENT TOXICITY [None]
